FAERS Safety Report 20725116 (Version 4)
Quarter: 2022Q2

REPORT INFORMATION
  Report Type: Spontaneous
  Country: JP (occurrence: JP)
  Receive Date: 20220419
  Receipt Date: 20220516
  Transmission Date: 20220720
  Serious: Yes (Hospitalization, Other)
  Sender: FDA-Public Use
  Company Number: JP-ABBVIE-22K-087-4355290-00

PATIENT
  Age: 39 Year
  Sex: Female

DRUGS (8)
  1. HUMIRA [Suspect]
     Active Substance: ADALIMUMAB
     Indication: Gastric ulcer
     Route: 058
     Dates: start: 20210603, end: 20211109
  2. HUMIRA [Suspect]
     Active Substance: ADALIMUMAB
     Indication: Gastrointestinal erosion
  3. HUMIRA [Suspect]
     Active Substance: ADALIMUMAB
     Indication: Rectal ulcer
  4. MESALAMINE [Concomitant]
     Active Substance: MESALAMINE
     Indication: Rectal ulcer
     Route: 054
     Dates: start: 20201029, end: 20210623
  5. PREDNISOLONE [Concomitant]
     Active Substance: PREDNISOLONE
     Indication: Gastric ulcer
     Dosage: 30
     Route: 048
     Dates: start: 20210527
  6. PREDNISOLONE [Concomitant]
     Active Substance: PREDNISOLONE
     Indication: Rectal ulcer
     Dosage: 30
     Route: 048
     Dates: end: 20210807
  7. LANSOPRAZOLE [Concomitant]
     Active Substance: LANSOPRAZOLE
     Indication: Gastric ulcer
     Route: 048
     Dates: start: 20210430, end: 20210526
  8. ESOMEPRAZOLE [Concomitant]
     Active Substance: ESOMEPRAZOLE
     Indication: Gastric ulcer
     Route: 048
     Dates: start: 20210527, end: 20220222

REACTIONS (3)
  - Anal stenosis [Recovered/Resolved]
  - Defaecation disorder [Not Recovered/Not Resolved]
  - Off label use [Unknown]

NARRATIVE: CASE EVENT DATE: 20210930
